FAERS Safety Report 19473988 (Version 2)
Quarter: 2021Q3

REPORT INFORMATION
  Report Type: Spontaneous
  Country: IT (occurrence: IT)
  Receive Date: 20210629
  Receipt Date: 20210708
  Transmission Date: 20211014
  Serious: Yes (Death, Hospitalization, Other)
  Sender: FDA-Public Use
  Company Number: IT-AMGEN-ITASP2021096156

PATIENT

DRUGS (2)
  1. ETANERCEPT [Suspect]
     Active Substance: ETANERCEPT
     Indication: PSORIASIS
     Dosage: UNK
     Route: 065
  2. ADALIMUMAB [Suspect]
     Active Substance: ADALIMUMAB
     Indication: PSORIASIS
     Dosage: UNK
     Route: 065

REACTIONS (5)
  - Acute respiratory distress syndrome [Fatal]
  - Suspected COVID-19 [Unknown]
  - COVID-19 [Unknown]
  - COVID-19 pneumonia [Unknown]
  - Multiple organ dysfunction syndrome [Fatal]
